FAERS Safety Report 14816815 (Version 1)
Quarter: 2018Q2

REPORT INFORMATION
  Report Type: Report from Study
  Country: None (occurrence: IL)
  Receive Date: 20180426
  Receipt Date: 20180426
  Transmission Date: 20180711
  Serious: Yes (Other)
  Sender: FDA-Public Use
  Company Number: IL-ABBVIE-18K-082-2335103-00

PATIENT
  Age: 14 Year
  Sex: Male

DRUGS (3)
  1. HUMIRA [Suspect]
     Active Substance: ADALIMUMAB
     Dosage: 40MG/0.4ML PEN
     Route: 058
     Dates: start: 201804, end: 201804
  2. HUMIRA [Suspect]
     Active Substance: ADALIMUMAB
     Dosage: 40MG/0.4ML PEN
     Route: 058
     Dates: start: 20180408, end: 20180408
  3. HUMIRA [Suspect]
     Active Substance: ADALIMUMAB
     Indication: CROHN^S DISEASE
     Route: 058
     Dates: start: 20141125, end: 2016

REACTIONS (1)
  - Small intestinal resection [Recovered/Resolved]

NARRATIVE: CASE EVENT DATE: 201709
